FAERS Safety Report 5426254-0 (Version None)
Quarter: 2007Q3

REPORT INFORMATION
  Report Type: 
  Country: None (occurrence: None)
  Receive Date: 20070827
  Receipt Date: 20070822
  Transmission Date: 20080115
  Serious: Yes (Other)
  Sender: FDA-Public Use
  Company Number: GB-MERCK-0708GBR00094

PATIENT
  Age: 76 Year
  Sex: Male
  Weight: 93 kg

DRUGS (5)
  1. ZETIA [Suspect]
     Indication: BLOOD CHOLESTEROL INCREASED
     Route: 048
     Dates: start: 20070704, end: 20070718
  2. ALFUZOSIN HYDROCHLORIDE [Concomitant]
     Route: 048
  3. BENDROFLUMETHIAZIDE [Concomitant]
     Route: 048
  4. FLECAINIDE ACETATE [Concomitant]
     Route: 048
  5. WARFARIN [Concomitant]
     Route: 048

REACTIONS (3)
  - INFLUENZA LIKE ILLNESS [None]
  - MYALGIA [None]
  - PAIN IN EXTREMITY [None]
